FAERS Safety Report 6258237-5 (Version None)
Quarter: 2009Q3

REPORT INFORMATION
  Report Type: 
  Country: None (occurrence: None)
  Receive Date: 20090702
  Receipt Date: 20090625
  Transmission Date: 20100115
  Serious: Yes (Death)
  Sender: FDA-Public Use
  Company Number: 310575

PATIENT
  Age: 78 Year

DRUGS (8)
  1. VINCRISTINE [Suspect]
     Indication: NON-HODGKIN'S LYMPHOMA STAGE IV
  2. DOXORUBICIN HCL [Suspect]
     Indication: NON-HODGKIN'S LYMPHOMA STAGE IV
  3. DEXAMETHASONE [Suspect]
     Indication: NON-HODGKIN'S LYMPHOMA STAGE IV
  4. (ETOPOSIDE) [Suspect]
     Indication: NON-HODGKIN'S LYMPHOMA STAGE IV
  5. CYCLOPHOSPHAMIDE [Suspect]
     Indication: NON-HODGKIN'S LYMPHOMA STAGE IV
  6. PREDNISOLONE [Suspect]
     Indication: NON-HODGKIN'S LYMPHOMA STAGE IV
  7. (METHOTREXATE) [Suspect]
     Indication: NON-HODGKIN'S LYMPHOMA STAGE IV
     Route: 037
  8. (CORTICOSTEROIDS) [Suspect]
     Indication: LYMPHOMA
     Route: 037

REACTIONS (2)
  - NON-HODGKIN'S LYMPHOMA STAGE IV [None]
  - SEPTIC SHOCK [None]
